FAERS Safety Report 5527366-3 (Version None)
Quarter: 2007Q4

REPORT INFORMATION
  Report Type: 
  Country: None (occurrence: None)
  Receive Date: 20071123
  Receipt Date: 20071119
  Transmission Date: 20080405
  Serious: Yes (Life-Threatening)
  Sender: FDA-Public Use
  Company Number: S07-USA-06024-01

PATIENT
  Age: 45 Year
  Sex: Female

DRUGS (1)
  1. CELEXA [Suspect]

REACTIONS (1)
  - ASPHYXIA [None]
